FAERS Safety Report 4673175-7 (Version None)
Quarter: 2005Q2

REPORT INFORMATION
  Report Type: 
  Country: None (occurrence: None)
  Receive Date: 20050525
  Receipt Date: 20030723
  Transmission Date: 20051028
  Serious: Yes (Disabling)
  Sender: FDA-Public Use
  Company Number: MX-BOEHRINGER INGELHEIM PHARMACEUTICALS, INC.-2003-BP-04945MX

PATIENT
  Age: 71 Year
  Sex: Female
  Weight: 90 kg

DRUGS (4)
  1. MICARDIS HCT [Suspect]
     Indication: HYPERTENSION
     Dosage: 80/12.5 MG
     Route: 048
     Dates: start: 20030623, end: 20030707
  2. BUDESONIDE [Concomitant]
     Indication: ADVERSE EVENT
  3. BUDESONIDE [Concomitant]
     Indication: PULMONARY FIBROSIS
  4. CROMOTEX (DINICOTINATO CHROMIUM) [Concomitant]
     Indication: ADVERSE EVENT
     Route: 048

REACTIONS (2)
  - DIZZINESS [None]
  - PAIN IN EXTREMITY [None]
